FAERS Safety Report 8538728-4 (Version None)
Quarter: 2012Q3

REPORT INFORMATION
  Report Type: 
  Country: None (occurrence: None)
  Receive Date: 20120726
  Receipt Date: 20120717
  Transmission Date: 20120928
  Serious: Yes (Hospitalization, Other)
  Sender: FDA-Public Use
  Company Number: US-SANOFI-AVENTIS-2012SA050727

PATIENT
  Age: 60 Year
  Sex: Female

DRUGS (4)
  1. ORAL ANTIDIABETICS [Concomitant]
     Dates: start: 19970101
  2. LANTUS SOLOSTAR [Suspect]
     Indication: TYPE 1 DIABETES MELLITUS
     Dosage: DOSE: 50 UNITS/75 UNITS MORNING AND 50 UNITS NIGHT
     Route: 058
     Dates: start: 20090101
  3. INSULIN [Concomitant]
     Dates: start: 20070101
  4. SOLOSTAR [Suspect]
     Indication: TYPE 1 DIABETES MELLITUS
     Dates: start: 20090101

REACTIONS (6)
  - SYNCOPE [None]
  - ROAD TRAFFIC ACCIDENT [None]
  - DEHYDRATION [None]
  - AMNESIA [None]
  - WEIGHT INCREASED [None]
  - BLOOD GLUCOSE INCREASED [None]
